FAERS Safety Report 8829790 (Version 2)
Quarter: 2013Q1

REPORT INFORMATION
  Report Type: Spontaneous
  Country: DE (occurrence: DE)
  Receive Date: 20121008
  Receipt Date: 20130219
  Transmission Date: 20140127
  Serious: Yes (Death, Hospitalization)
  Sender: FDA-Public Use
  Company Number: DE-BRISTOL-MYERS SQUIBB COMPANY-17007527

PATIENT
  Age: 70 Year
  Sex: Female

DRUGS (1)
  1. IPILIMUMAB [Suspect]
     Indication: METASTATIC MALIGNANT MELANOMA
     Route: 042
     Dates: start: 20120627, end: 20120809

REACTIONS (4)
  - General physical health deterioration [Fatal]
  - Sepsis [Unknown]
  - Diarrhoea [Unknown]
  - Haematochezia [Unknown]
